FAERS Safety Report 6204934-7 (Version None)
Quarter: 2009Q2

REPORT INFORMATION
  Report Type: 
  Country: None (occurrence: None)
  Receive Date: 20090526
  Receipt Date: 20090512
  Transmission Date: 20091009
  Serious: Yes (Death, Hospitalization, Other)
  Sender: FDA-Public Use
  Company Number: POMP-1000078

PATIENT
  Age: 8 Month
  Sex: Male

DRUGS (18)
  1. MYOZYME [Suspect]
     Indication: GLYCOGEN STORAGE DISEASE TYPE II
     Dosage: 20 MG/KG, Q2W, INTRAVENOUS
     Route: 042
     Dates: start: 20080209, end: 20080223
  2. CAPTOPRIL (CAPTOPRIL) UNKNOWN [Concomitant]
  3. FUROSEMIDE (FUROSEMIDE) UNKNOWN [Concomitant]
  4. SPIRONOLACTONE [Concomitant]
  5. POTASSIUM CHLORIDE (POTASSIUMC HLORIDE) SYRUP, 10 % [Concomitant]
  6. HYDROCHLOROTHIAZIDE [Concomitant]
  7. CARVEDILOL (CARVEDILOL) UNKNOWN [Concomitant]
  8. DIAZEPAM [Concomitant]
  9. CEFEPIME (CEFEPIME) UNKNOWN [Concomitant]
  10. MIDAZOLAM HCL [Concomitant]
  11. KETAMINE (KETAMINE) UNKNOWN [Concomitant]
  12. ROCURONIUM (ROCURONIUM) UNKNOWN [Concomitant]
  13. ADRENALINE (EPINEPHRINE) UNKNOWN [Concomitant]
  14. ONDANSETRON (ONDANSETRON) UNKNOWN [Concomitant]
  15. BENADRYL (DIPHENHYDRAMINE) UNKNOWN [Concomitant]
  16. DIPYRONE (METAMIZOLE SODIUM) UNKNOWN [Concomitant]
  17. PARACETAMOL (PARACETAMOL) UNKNOWN [Concomitant]
  18. METHYLPREDNISOLONE (METHYLPREDNISOLONE) UNKNOWN [Concomitant]

REACTIONS (46)
  - APNOEA [None]
  - BLOOD PRESSURE DECREASED [None]
  - BRADYCARDIA [None]
  - BREATH SOUNDS ABNORMAL [None]
  - BRONCHOPNEUMONIA [None]
  - CARDIAC FAILURE [None]
  - CARDIO-RESPIRATORY ARREST [None]
  - CIRCULATORY COLLAPSE [None]
  - CONSTIPATION [None]
  - CONVULSION [None]
  - COUGH [None]
  - CYANOSIS [None]
  - CYTOMEGALOVIRUS INFECTION [None]
  - DIARRHOEA [None]
  - ELECTROCARDIOGRAM REPOLARISATION ABNORMALITY [None]
  - ELECTROCARDIOGRAM ST SEGMENT DEPRESSION [None]
  - ENDOTRACHEAL INTUBATION COMPLICATION [None]
  - FEEDING TUBE COMPLICATION [None]
  - GASTRITIS [None]
  - GENERAL PHYSICAL HEALTH DETERIORATION [None]
  - HEPATIC CONGESTION [None]
  - HEPATOMEGALY [None]
  - HYDROCELE [None]
  - HYPERTONIA [None]
  - HYPOPHAGIA [None]
  - HYPOXIA [None]
  - INTERCOSTAL RETRACTION [None]
  - IRRITABILITY [None]
  - LYMPHOID TISSUE HYPERPLASIA [None]
  - MITRAL VALVE INCOMPETENCE [None]
  - OEDEMA PERIPHERAL [None]
  - PALLOR [None]
  - PULMONARY HYPERTENSION [None]
  - PULSE PRESSURE DECREASED [None]
  - PYREXIA [None]
  - RALES [None]
  - RASH [None]
  - RESPIRATION ABNORMAL [None]
  - RHONCHI [None]
  - RIGHT VENTRICULAR HYPERTROPHY [None]
  - TACHYCARDIA [None]
  - TACHYPNOEA [None]
  - TRACHEAL HAEMORRHAGE [None]
  - TRACHEITIS [None]
  - VOMITING [None]
  - WHEEZING [None]
